FAERS Safety Report 7118826-2 (Version None)
Quarter: 2010Q4

REPORT INFORMATION
  Report Type: 
  Country: None (occurrence: None)
  Receive Date: 20101123
  Receipt Date: 20100916
  Transmission Date: 20110411
  Serious: No
  Sender: FDA-Public Use
  Company Number: US-KINGPHARMUSA00001-K201001160

PATIENT
  Sex: Male
  Weight: 97.959 kg

DRUGS (4)
  1. FLECTOR [Suspect]
     Indication: NECK PAIN
     Dosage: 1 PATCH, SINGLE
     Route: 061
     Dates: start: 20100913, end: 20100914
  2. FLECTOR [Suspect]
     Indication: NECK INJURY
  3. LYRICA [Suspect]
     Indication: ARTHRALGIA
     Dosage: 50 MG, SINGLE
     Dates: start: 20100913, end: 20100913
  4. NAPROXEN [Concomitant]

REACTIONS (4)
  - DISORIENTATION [None]
  - DIZZINESS [None]
  - DYSARTHRIA [None]
  - DYSPNOEA [None]
